FAERS Safety Report 9539706 (Version 1)
Quarter: 2013Q3

REPORT INFORMATION
  Report Type: Spontaneous
  Country: MX (occurrence: MX)
  Receive Date: 20130920
  Receipt Date: 20130920
  Transmission Date: 20140515
  Serious: Yes (Other)
  Sender: FDA-Public Use
  Company Number: MX-SANOFI-AVENTIS-2013SA092678

PATIENT
  Sex: 0

DRUGS (2)
  1. THYMOGLOBULIN [Suspect]
     Indication: BONE MARROW TRANSPLANT
     Route: 042
     Dates: start: 201309
  2. THYMOGLOBULIN [Suspect]
     Indication: APLASTIC ANAEMIA
     Route: 042
     Dates: start: 201309

REACTIONS (2)
  - Bronchospasm [Unknown]
  - Urticaria [Unknown]
